FAERS Safety Report 14518472 (Version 5)
Quarter: 2018Q3

REPORT INFORMATION
  Report Type: Report from Study
  Country: FR (occurrence: FR)
  Receive Date: 20180212
  Receipt Date: 20180716
  Transmission Date: 20181010
  Serious: Yes (Other)
  Sender: FDA-Public Use
  Company Number: FR-PFIZER INC-2018051350

PATIENT
  Sex: Female
  Weight: 70 kg

DRUGS (3)
  1. GILENYA [Suspect]
     Active Substance: FINGOLIMOD HYDROCHLORIDE
     Indication: MULTIPLE SCLEROSIS
     Dosage: 0.5 MG, 1X/DAY (QD)
     Route: 048
     Dates: start: 20151022
  2. SOLU?MEDROL [Suspect]
     Active Substance: METHYLPREDNISOLONE SODIUM SUCCINATE
     Dosage: UNK
  3. POLARAMINE [Suspect]
     Active Substance: DEXCHLORPHENIRAMINE MALEATE
     Dosage: UNK

REACTIONS (19)
  - Aspartate aminotransferase decreased [Unknown]
  - Leukopenia [Not Recovered/Not Resolved]
  - Urinary tract infection [Recovered/Resolved]
  - Lymphopenia [Recovered/Resolved]
  - Leukopenia [Recovered/Resolved]
  - Transaminases increased [Recovered/Resolved]
  - Neutropenia [Recovered/Resolved]
  - Lymphopenia [Recovered/Resolved]
  - Lymphopenia [Recovered/Resolved]
  - Transaminases increased [Unknown]
  - Aspartate aminotransferase increased [Unknown]
  - Hypersensitivity [Recovered/Resolved]
  - Leukopenia [Recovered/Resolved]
  - Lymphopenia [Recovered/Resolved]
  - Lymphopenia [Recovered/Resolved]
  - Escherichia urinary tract infection [Recovered/Resolved]
  - Alanine aminotransferase increased [Unknown]
  - Leukopenia [Recovered/Resolved]
  - Leukopenia [Recovered/Resolved]

NARRATIVE: CASE EVENT DATE: 20151216
